FAERS Safety Report 6519661-6 (Version None)
Quarter: 2009Q4

REPORT INFORMATION
  Report Type: 
  Country: None (occurrence: None)
  Receive Date: 20091228
  Receipt Date: 20091217
  Transmission Date: 20100525
  Serious: Yes (Other)
  Sender: FDA-Public Use
  Company Number: US-PFIZER INC-2009313128

PATIENT
  Sex: Male
  Weight: 90.703 kg

DRUGS (3)
  1. LIPITOR [Suspect]
     Indication: BLOOD CHOLESTEROL
     Dosage: UNK
  2. ACETYLSALICYLIC ACID [Concomitant]
     Dosage: UNK
  3. PROBENECID [Concomitant]
     Dosage: UNK

REACTIONS (3)
  - BACK PAIN [None]
  - CARDIAC OPERATION [None]
  - PAIN IN EXTREMITY [None]
